FAERS Safety Report 8321462-3 (Version None)
Quarter: 2012Q2

REPORT INFORMATION
  Report Type: 
  Country: None (occurrence: None)
  Receive Date: 20120430
  Receipt Date: 20120430
  Transmission Date: 20120825
  Serious: Yes (Hospitalization, Other)
  Sender: FDA-Public Use
  Company Number: None

PATIENT
  Age: 69 Year
  Sex: Male
  Weight: 106.59 kg

DRUGS (2)
  1. LEVEMIR [Concomitant]
     Indication: DIABETES MELLITUS
     Dosage: 30 UNITS
     Route: 030
     Dates: start: 20120317, end: 20120427
  2. SIMVASTATIN [Suspect]
     Indication: ARTERIAL STENT INSERTION
     Dosage: 1 TAB
     Dates: start: 20120321, end: 20120427

REACTIONS (6)
  - PAIN IN EXTREMITY [None]
  - PAIN IN JAW [None]
  - PANCREATIC CYST [None]
  - INCISIONAL HERNIA [None]
  - CHEST PAIN [None]
  - ABDOMINAL DISTENSION [None]
